FAERS Safety Report 21481337 (Version 1)
Quarter: 2022Q4

REPORT INFORMATION
  Report Type: Spontaneous
  Country: US (occurrence: None)
  Receive Date: 20221019
  Receipt Date: 20221019
  Transmission Date: 20230113
  Serious: Yes (Hospitalization)
  Sender: FDA-Public Use
  Company Number: None

PATIENT
  Age: 68 Year
  Sex: Male
  Weight: 54.7 kg

DRUGS (2)
  1. FLUDARABINE [Suspect]
     Active Substance: FLUDARABINE PHOSPHATE
  2. CYCLOPHOSPHAMIDE [Suspect]
     Active Substance: CYCLOPHOSPHAMIDE

REACTIONS (11)
  - Headache [None]
  - Fatigue [None]
  - Myalgia [None]
  - Hypotension [None]
  - C-reactive protein increased [None]
  - Neurotoxicity [None]
  - Cytokine release syndrome [None]
  - Somnolence [None]
  - Memory impairment [None]
  - Confusional state [None]
  - Encephalopathy [None]

NARRATIVE: CASE EVENT DATE: 20220722
